FAERS Safety Report 9366618 (Version 2)
Quarter: 2013Q3

REPORT INFORMATION
  Report Type: Spontaneous
  Country: CH (occurrence: CH)
  Receive Date: 20130625
  Receipt Date: 20130719
  Transmission Date: 20140515
  Serious: Yes (Death)
  Sender: FDA-Public Use
  Company Number: CH-BRISTOL-MYERS SQUIBB COMPANY-19033836

PATIENT
  Age: 41 Year
  Sex: Male
  Weight: 98 kg

DRUGS (7)
  1. YERVOY [Suspect]
     Dates: start: 20130417
  2. PANTOZOL [Concomitant]
     Dosage: 1DF:40 UNITS NOS
  3. URBANYL [Concomitant]
     Dosage: 1DF:10 UNITS NOS?FREQUENCY:1/2-1/2-0-1
  4. FORTECORTIN [Concomitant]
  5. KEPPRA [Concomitant]
  6. PRADIF [Concomitant]
  7. CALCIMAGON-D3 [Concomitant]

REACTIONS (1)
  - Malignant neoplasm progression [Fatal]
